FAERS Safety Report 7169956-0 (Version None)
Quarter: 2010Q4

REPORT INFORMATION
  Report Type: 
  Country: None (occurrence: None)
  Receive Date: 20101217
  Receipt Date: 20101208
  Transmission Date: 20110411
  Serious: Yes (Other)
  Sender: FDA-Public Use
  Company Number: RO-BRISTOL-MYERS SQUIBB COMPANY-15444946

PATIENT
  Age: 61 Year
  Sex: Female

DRUGS (4)
  1. GLUCOPHAGE XR [Suspect]
     Indication: TYPE 2 DIABETES MELLITUS
     Dosage: 1DF= 1 TABLET.
     Dates: start: 20101025, end: 20101110
  2. GLUCOPHAGE XR [Suspect]
     Indication: METABOLIC SYNDROME
     Dosage: 1DF= 1 TABLET.
     Dates: start: 20101025, end: 20101110
  3. SIMVOR [Suspect]
     Indication: DYSLIPIDAEMIA
     Route: 048
  4. ASPENTER [Suspect]
     Indication: ANTIPLATELET THERAPY
     Route: 048

REACTIONS (2)
  - DECREASED APPETITE [None]
  - NAUSEA [None]
